FAERS Safety Report 20403642 (Version 1)
Quarter: 2022Q1

REPORT INFORMATION
  Report Type: Spontaneous
  Country: US (occurrence: US)
  Receive Date: 20220131
  Receipt Date: 20220131
  Transmission Date: 20220423
  Serious: Yes (Other)
  Sender: FDA-Public Use
  Company Number: US-CIPLA LTD.-2022US00372

PATIENT

DRUGS (26)
  1. WARFARIN [Interacting]
     Active Substance: WARFARIN
     Indication: Cerebrovascular accident
     Dosage: UNK
     Route: 065
     Dates: start: 2012
  2. WARFARIN [Interacting]
     Active Substance: WARFARIN
     Indication: Prophylaxis
     Dosage: (22.5 MG/WEEK) 2.5MG DAILY EXCEPT 5MG SUNDAYS AND WEDNESDAY
     Route: 065
     Dates: start: 201605, end: 20181015
  3. WARFARIN [Interacting]
     Active Substance: WARFARIN
     Dosage: (22.5 MG/WEEK) 2.5MG DAILY EXCEPT 5MG SUNDAYS AND WEDNESDAY
     Route: 065
     Dates: start: 20181015, end: 20181108
  4. WARFARIN [Interacting]
     Active Substance: WARFARIN
     Dosage: 20 MG/WEEK
     Route: 065
     Dates: start: 20181108, end: 20181120
  5. WARFARIN [Interacting]
     Active Substance: WARFARIN
     Dosage: 20 MG/WEEK (2.5MG DAILY EXCEPT 5MG ON WEDNESDAYS
     Route: 065
     Dates: start: 20181120, end: 20181206
  6. WARFARIN [Interacting]
     Active Substance: WARFARIN
     Dosage: 22.5 MG/WEEK
     Route: 065
     Dates: start: 20181206, end: 20181219
  7. WARFARIN [Interacting]
     Active Substance: WARFARIN
     Dosage: (22.5MG / WEEK) 2.5MG DAILY EXCEPT 5MG ON WEDNESDAYS AND FRIDAYS
     Route: 065
     Dates: start: 20181219, end: 20190109
  8. WARFARIN [Interacting]
     Active Substance: WARFARIN
     Dosage: 22.5 MG/WEEK
     Route: 065
     Dates: start: 20190109, end: 20190206
  9. WARFARIN [Interacting]
     Active Substance: WARFARIN
     Dosage: 22.5 MG/WEEK
     Route: 065
     Dates: start: 20190206, end: 20190307
  10. WARFARIN [Interacting]
     Active Substance: WARFARIN
     Dosage: 22.5 MG/WEEK
     Route: 065
     Dates: start: 20190307, end: 20190404
  11. WARFARIN [Interacting]
     Active Substance: WARFARIN
     Dosage: 22.5 MG/WEEK
     Route: 065
     Dates: start: 20190404, end: 20190418
  12. WARFARIN [Interacting]
     Active Substance: WARFARIN
     Dosage: 22.5 MG/WEEK
     Route: 065
     Dates: start: 20190418, end: 20190530
  13. WARFARIN [Interacting]
     Active Substance: WARFARIN
     Dosage: 22.5 MG/WEEK
     Route: 065
     Dates: start: 20190530, end: 20190711
  14. WARFARIN [Interacting]
     Active Substance: WARFARIN
     Dosage: 22.5 MG/WEEK
     Route: 065
     Dates: start: 20190711, end: 20190822
  15. WARFARIN [Interacting]
     Active Substance: WARFARIN
     Dosage: 22.5 MG/WEEK
     Route: 065
     Dates: start: 20190822, end: 20190905
  16. ALBUTEROL [Concomitant]
     Active Substance: ALBUTEROL
     Indication: Product used for unknown indication
     Dosage: UNK
     Route: 065
  17. AMIODARONE [Concomitant]
     Active Substance: AMIODARONE
     Indication: Product used for unknown indication
     Dosage: UNK
     Route: 065
  18. AMLODIPINE [Concomitant]
     Active Substance: AMLODIPINE BESYLATE
     Indication: Product used for unknown indication
     Dosage: UNK
     Route: 065
  19. ATORVASTATIN [Concomitant]
     Active Substance: ATORVASTATIN
     Indication: Product used for unknown indication
     Dosage: UNK
     Route: 065
  20. DOCUSATE [Concomitant]
     Active Substance: DOCUSATE
     Indication: Product used for unknown indication
     Dosage: UNK
     Route: 065
  21. FINASTERIDE [Concomitant]
     Active Substance: FINASTERIDE
     Indication: Product used for unknown indication
     Dosage: UNKNOWN
     Route: 065
  22. FOLIC ACID [Concomitant]
     Active Substance: FOLIC ACID
     Indication: Product used for unknown indication
     Dosage: UNK
     Route: 065
  23. GABAPENTIN [Concomitant]
     Active Substance: GABAPENTIN
     Indication: Product used for unknown indication
     Dosage: UNK
     Route: 065
  24. ISOSORBIDE MONONITRATE [Concomitant]
     Active Substance: ISOSORBIDE MONONITRATE
     Indication: Product used for unknown indication
     Dosage: UNK
     Route: 065
  25. METOPROLOL TARTRATE [Concomitant]
     Active Substance: METOPROLOL TARTRATE
     Indication: Product used for unknown indication
     Dosage: UNK
     Route: 065
  26. SERTRALINE [Concomitant]
     Active Substance: SERTRALINE HYDROCHLORIDE
     Indication: Product used for unknown indication
     Dosage: UNK
     Route: 065

REACTIONS (3)
  - Anticoagulation drug level below therapeutic [Unknown]
  - Anticoagulation drug level above therapeutic [Unknown]
  - Drug interaction [Unknown]

NARRATIVE: CASE EVENT DATE: 20181108
